FAERS Safety Report 8963740 (Version 2)
Quarter: 2012Q4

REPORT INFORMATION
  Report Type: 
  Country: US (occurrence: US)
  Receive Date: 20121214
  Receipt Date: 20121226
  Transmission Date: 20130627
  Serious: Yes (Other)
  Sender: FDA-Public Use
  Company Number: US-JNJFOC-20121206350

PATIENT
  Age: 46 Year
  Sex: Female
  Weight: 54.43 kg

DRUGS (2)
  1. BENADRYL [Suspect]
     Indication: SLEEP DISORDER THERAPY
     Dosage: 3 pills in 25 hours
     Route: 048
     Dates: start: 20100112, end: 20120612
  2. BENADRYL [Suspect]
     Indication: SLEEP DISORDER THERAPY
     Route: 048

REACTIONS (2)
  - Hallucination [Recovered/Resolved]
  - Off label use [Unknown]
